FAERS Safety Report 4500738-1 (Version None)
Quarter: 2004Q4

REPORT INFORMATION
  Report Type: 
  Country: None (occurrence: None)
  Receive Date: 20041109
  Receipt Date: 20041025
  Transmission Date: 20050328
  Serious: Yes (Other)
  Sender: FDA-Public Use
  Company Number: USA041082114

PATIENT
  Sex: Male

DRUGS (6)
  1. HUMALOG [Suspect]
     Indication: DIABETES MELLITUS
  2. HUMULIN N [Suspect]
     Indication: DIABETES MELLITUS
     Dosage: 10 U/2 DAY
  3. ACCUPRIL [Concomitant]
  4. COUMADIN [Concomitant]
  5. SYNTHROID [Concomitant]
  6. TEGRETOL (CARBAMAZEPINE RIVOPHARM) [Concomitant]

REACTIONS (6)
  - BLOOD GLUCOSE INCREASED [None]
  - CEREBROVASCULAR ACCIDENT [None]
  - DEVICE FAILURE [None]
  - PHARMACEUTICAL PRODUCT COMPLAINT [None]
  - URINE OUTPUT INCREASED [None]
  - VISUAL ACUITY REDUCED [None]
